FAERS Safety Report 21636538 (Version 2)
Quarter: 2022Q4

REPORT INFORMATION
  Report Type: Spontaneous
  Country: ES (occurrence: ES)
  Receive Date: 20221124
  Receipt Date: 20221202
  Transmission Date: 20230113
  Serious: Yes (Hospitalization, Other)
  Sender: FDA-Public Use
  Company Number: ES-ALKEM LABORATORIES LIMITED-ES-ALKEM-2022-12865

PATIENT
  Age: 60 Year
  Sex: Male

DRUGS (3)
  1. LEVOFLOXACIN [Suspect]
     Active Substance: LEVOFLOXACIN
     Indication: Staphylococcal infection
     Dosage: UNK
     Route: 065
  2. LINEZOLID [Suspect]
     Active Substance: LINEZOLID
     Indication: Staphylococcal infection
     Dosage: UNK
     Route: 065
  3. SULFAMETHOXAZOLE\TRIMETHOPRIM [Suspect]
     Active Substance: SULFAMETHOXAZOLE\TRIMETHOPRIM
     Indication: Staphylococcal infection
     Dosage: UNK
     Route: 065

REACTIONS (1)
  - Haematotoxicity [Recovering/Resolving]
